FAERS Safety Report 6293291-6 (Version None)
Quarter: 2009Q3

REPORT INFORMATION
  Report Type: 
  Country: None (occurrence: None)
  Receive Date: 20090731
  Receipt Date: 20090722
  Transmission Date: 20100115
  Serious: Yes (Death)
  Sender: FDA-Public Use
  Company Number: IN-GENENTECH-287671

PATIENT
  Age: 39 Year
  Sex: Male

DRUGS (1)
  1. ACTIVASE [Suspect]
     Indication: LATERAL MEDULLARY SYNDROME
     Dosage: 9 MG, UNK
     Route: 013

REACTIONS (1)
  - CARDIO-RESPIRATORY ARREST [None]
